FAERS Safety Report 8521744-6 (Version None)
Quarter: 2012Q3

REPORT INFORMATION
  Report Type: 
  Country: None (occurrence: None)
  Receive Date: 20120719
  Receipt Date: 20120713
  Transmission Date: 20120928
  Serious: Yes (Other)
  Sender: FDA-Public Use
  Company Number: US-FRI-1000037076

PATIENT
  Sex: Female
  Weight: 86 kg

DRUGS (8)
  1. VIIBRYD [Suspect]
     Indication: POST-TRAUMATIC STRESS DISORDER
     Dosage: 10 MG
     Route: 048
     Dates: start: 20120601, end: 20120101
  2. ASPIRIN [Concomitant]
     Indication: PAIN
  3. CHONDROITIN [Concomitant]
  4. VIIBRYD [Suspect]
     Dosage: 20 MG
     Route: 048
     Dates: start: 20120101
  5. GLUCOSAMINE [Concomitant]
  6. GENERIC MEDICATION (NOS) [Suspect]
     Indication: POST-TRAUMATIC STRESS DISORDER
     Dates: end: 20120601
  7. LEVOTHYROXINE SODIUM [Concomitant]
     Dosage: 75 MCG
  8. FISH OIL [Concomitant]
     Indication: BLOOD CHOLESTEROL INCREASED

REACTIONS (8)
  - PANIC ATTACK [None]
  - NAUSEA [None]
  - ASTHENIA [None]
  - OFF LABEL USE [None]
  - WEIGHT DECREASED [None]
  - ABNORMAL DREAMS [None]
  - POOR QUALITY SLEEP [None]
  - PALPITATIONS [None]
